FAERS Safety Report 19672722 (Version 1)
Quarter: 2021Q3

REPORT INFORMATION
  Report Type: Report from Study
  Country: GB (occurrence: GB)
  Receive Date: 20210809
  Receipt Date: 20210809
  Transmission Date: 20211014
  Serious: Yes (Hospitalization, Other)
  Sender: FDA-Public Use
  Company Number: GB-TEVA-2021-GB-1939077

PATIENT
  Age: 67 Year
  Sex: Female
  Weight: 65.9 kg

DRUGS (36)
  1. DOCUSATE SODIUM. [Concomitant]
     Active Substance: DOCUSATE SODIUM
     Route: 065
     Dates: start: 20210620
  2. NICOTINE. [Concomitant]
     Active Substance: NICOTINE
     Dosage: 21 MILLIGRAM DAILY;
     Route: 062
     Dates: start: 20210522
  3. PHOSPHATE SANDOZ EFFERVESCENT [Concomitant]
     Dosage: EFFERVESCENT
     Route: 065
     Dates: start: 20210527, end: 20210529
  4. SANDO?K [Concomitant]
     Route: 065
     Dates: start: 20210623, end: 20210626
  5. SENNOSIDES A AND B [Concomitant]
     Active Substance: SENNOSIDES A AND B
     Route: 065
     Dates: start: 20210522
  6. ETOPOSIDE. [Suspect]
     Active Substance: ETOPOSIDE
     Dosage: 164 MG
     Route: 042
     Dates: start: 20210401
  7. AMOXICILLIN. [Concomitant]
     Active Substance: AMOXICILLIN
     Route: 065
     Dates: start: 20210427
  8. GLYCEROL [Concomitant]
     Active Substance: GLYCERIN
     Route: 065
     Dates: start: 20210430
  9. BISACODYL. [Concomitant]
     Active Substance: BISACODYL
     Dosage: 4 DOSAGE FORMS DAILY;
     Route: 065
     Dates: start: 20210426
  10. BISOPROLOL [Concomitant]
     Active Substance: BISOPROLOL
     Route: 065
     Dates: start: 2019
  11. DEXAMETHASONE. [Concomitant]
     Active Substance: DEXAMETHASONE
     Dosage: 8 MG
     Route: 065
     Dates: start: 20210610, end: 20210610
  12. METOCLOPRAMIDE. [Concomitant]
     Active Substance: METOCLOPRAMIDE
     Indication: NAUSEA
     Dosage: 10 MG, WHEN REQUIRED WITH A MINIMUM DOSAGE INTERVAL OF 6 HOURS AND A MAXIMUM OF
     Route: 065
     Dates: start: 20210620
  13. ONDANSETRON [Concomitant]
     Active Substance: ONDANSETRON
     Dosage: 8 MG
     Route: 065
     Dates: start: 20210610, end: 20210610
  14. PARACETAMOL [Concomitant]
     Active Substance: ACETAMINOPHEN
     Dosage: 1 GRAM DAILY;  WHEN REQUIRED WITH A MINIMUM DOSAGE INTERVAL OF 4 HOURS AND A MAXIMUM OF 4 DOSES PER
     Route: 065
     Dates: start: 20210522
  15. METOCLOPRAMIDE. [Concomitant]
     Active Substance: METOCLOPRAMIDE
     Indication: VOMITING
  16. NICOTINE. [Concomitant]
     Active Substance: NICOTINE
     Dosage: 1 MILLIGRAM DAILY; 1MG ORAL SPRAY MANAGEMENT OF NICOTINE WITHDRAWAL. 1 TO 2 SPRAYS, WHEN REQUIRED WI
     Route: 048
     Dates: start: 20210522
  17. CARBOPLATIN. [Suspect]
     Active Substance: CARBOPLATIN
     Indication: SMALL CELL LUNG CANCER EXTENSIVE STAGE
     Dosage: 450 MG
     Route: 065
     Dates: start: 20210401
  18. ETOPOSIDE. [Suspect]
     Active Substance: ETOPOSIDE
     Indication: SMALL CELL LUNG CANCER EXTENSIVE STAGE
     Dosage: 600 MG
     Route: 048
     Dates: start: 20210423
  19. ONDANSETRON [Concomitant]
     Active Substance: ONDANSETRON
     Dosage: 8 MG
     Route: 065
     Dates: start: 20210513, end: 20210513
  20. ATEZOLIZUMAB. [Suspect]
     Active Substance: ATEZOLIZUMAB
     Dates: start: 20210513
  21. ATEZOLIZUMAB. [Suspect]
     Active Substance: ATEZOLIZUMAB
     Dates: start: 20210610
  22. DEXAMETHASONE. [Concomitant]
     Active Substance: DEXAMETHASONE
     Dosage: 8 MG
     Route: 065
     Dates: start: 20210513, end: 20210513
  23. PARACETAMOL [Concomitant]
     Active Substance: ACETAMINOPHEN
     Route: 065
     Dates: start: 20210620
  24. RAMIPRIL. [Concomitant]
     Active Substance: RAMIPRIL
     Route: 065
     Dates: start: 2011
  25. THIAMINE. [Concomitant]
     Active Substance: THIAMINE
     Indication: PROPHYLAXIS
     Dosage: TREAT VITAMIN B DEFICIENCY.PRESCRIBED TO BE TAKEN AFTER HOSPITALISATION WITH NEUTROPENIC
     Route: 065
     Dates: start: 20210624, end: 20210628
  26. GCSF [Concomitant]
     Active Substance: UNSPECIFIED INGREDIENT
  27. DEXAMETHASONE. [Concomitant]
     Active Substance: DEXAMETHASONE
     Route: 065
     Dates: start: 20210422, end: 20210422
  28. FILGRASTIM [Concomitant]
     Active Substance: FILGRASTIM
     Dosage: 30 MILLION UNITS/ 0.5ML
     Route: 065
     Dates: start: 20210625, end: 20210628
  29. MOVICOL [Concomitant]
     Active Substance: POLYETHYLENE GLYCOL 3350\POTASSIUM CHLORIDE\SODIUM BICARBONATE\SODIUM CHLORIDE
     Route: 065
     Dates: start: 20210427
  30. NOCTEC [Concomitant]
     Active Substance: CHLORAL HYDRATE
     Route: 065
     Dates: start: 20210522
  31. ATEZOLIZUMAB. [Suspect]
     Active Substance: ATEZOLIZUMAB
     Indication: SMALL CELL LUNG CANCER EXTENSIVE STAGE
     Dosage: DATE OF MOST RECENT DOSE OF STUDY DRUG PRIOR TO AE:13/MAY/2021, ON 10?JUN?2021, RECEIVED LAST DOSE B
     Route: 041
     Dates: start: 20210401
  32. AMLODIPINE [Concomitant]
     Active Substance: AMLODIPINE BESYLATE
     Route: 065
     Dates: start: 2011
  33. CO?AMOXICLAV [Concomitant]
     Active Substance: AMOXICILLIN\CLAVULANATE POTASSIUM
     Dosage: AMOXICILLIN 500MG +POTASSIUM CLAVUNALATE 125MG TABLET
     Route: 065
     Dates: start: 20210522, end: 20210531
  34. BISACODYL. [Concomitant]
     Active Substance: BISACODYL
     Route: 065
     Dates: start: 20210426
  35. DOCUSATE SODIUM. [Concomitant]
     Active Substance: DOCUSATE SODIUM
     Route: 065
     Dates: start: 20210601
  36. MEROPENEM. [Concomitant]
     Active Substance: MEROPENEM
     Route: 042

REACTIONS (7)
  - Endometrial cancer [Not Recovered/Not Resolved]
  - Thrombocytopenia [Recovered/Resolved]
  - Immune-mediated enterocolitis [Recovered/Resolved]
  - Neutropenic sepsis [Recovered/Resolved]
  - Back pain [Not Recovered/Not Resolved]
  - Abdominal pain [Recovered/Resolved]
  - Constipation [Unknown]

NARRATIVE: CASE EVENT DATE: 20210404
